FAERS Safety Report 6332492-5 (Version None)
Quarter: 2009Q3

REPORT INFORMATION
  Report Type: 
  Country: None (occurrence: None)
  Receive Date: 20090828
  Receipt Date: 20080805
  Transmission Date: 20100115
  Serious: No
  Sender: FDA-Public Use
  Company Number: A0742464A

PATIENT
  Sex: Male

DRUGS (1)
  1. MALARONE [Suspect]
     Indication: MALARIA PROPHYLAXIS
     Dosage: 1TAB SINGLE DOSE
     Route: 048

REACTIONS (8)
  - ABDOMINAL DISCOMFORT [None]
  - ADVERSE DRUG REACTION [None]
  - ANXIETY [None]
  - DEHYDRATION [None]
  - HYPOPHAGIA [None]
  - LETHARGY [None]
  - OLIGODIPSIA [None]
  - VOMITING [None]
